FAERS Safety Report 9065677 (Version 1)
Quarter: 2013Q1

REPORT INFORMATION
  Report Type: Report from Study
  Country: US (occurrence: US)
  Receive Date: 20130131
  Receipt Date: 20130131
  Transmission Date: 20140127
  Serious: No
  Sender: FDA-Public Use
  Company Number: US-ABBOTT-12P-163-0919259-00

PATIENT
  Age: 61 Year
  Sex: Male

DRUGS (2)
  1. HUMIRA [Suspect]
     Indication: CROHN^S DISEASE
     Route: 058
     Dates: start: 201202
  2. HUMIRA [Suspect]
     Indication: COLITIS ULCERATIVE

REACTIONS (9)
  - Secretion discharge [Recovered/Resolved]
  - Mass [Recovered/Resolved]
  - Furuncle [Unknown]
  - Diarrhoea [Unknown]
  - Furuncle [Not Recovered/Not Resolved]
  - Pruritus [Not Recovered/Not Resolved]
  - Arthralgia [Not Recovered/Not Resolved]
  - Injection site pain [Unknown]
  - Nasopharyngitis [Unknown]
